FAERS Safety Report 24751936 (Version 3)
Quarter: 2025Q1

REPORT INFORMATION
  Report Type: Spontaneous
  Country: US (occurrence: US)
  Receive Date: 20241219
  Receipt Date: 20250326
  Transmission Date: 20250409
  Serious: Yes (Other)
  Sender: TAKEDA
  Company Number: US-TAKEDA-2024TUS124558

PATIENT
  Sex: Female
  Weight: 102 kg

DRUGS (9)
  1. TAKHZYRO [Suspect]
     Active Substance: LANADELUMAB-FLYO
     Indication: Immune system disorder
     Dosage: 300 MILLIGRAM, Q2WEEKS
     Dates: start: 20190601
  2. TAKHZYRO [Suspect]
     Active Substance: LANADELUMAB-FLYO
     Indication: Angioedema
     Dosage: UNK, Q2WEEKS
     Dates: start: 20190614
  3. TAKHZYRO [Suspect]
     Active Substance: LANADELUMAB-FLYO
     Dosage: 300 MILLIGRAM, Q2WEEKS
     Dates: start: 20190701
  4. GLIMEPIRIDE [Concomitant]
     Active Substance: GLIMEPIRIDE
  5. ICATIBANT ACETATE [Concomitant]
     Active Substance: ICATIBANT ACETATE
  6. SIMVASTATIN [Concomitant]
     Active Substance: SIMVASTATIN
  7. METFORMIN [Concomitant]
     Active Substance: METFORMIN HYDROCHLORIDE
  8. AMLODIPINE [Concomitant]
     Active Substance: AMLODIPINE BESYLATE
  9. ICATIBANT [Concomitant]
     Active Substance: ICATIBANT ACETATE

REACTIONS (3)
  - Cataract [Unknown]
  - Pain [Unknown]
  - Product dose omission in error [Unknown]
